FAERS Safety Report 13176943 (Version 3)
Quarter: 2017Q3

REPORT INFORMATION
  Report Type: Report from Study
  Country: US (occurrence: US)
  Receive Date: 20170201
  Receipt Date: 20170713
  Transmission Date: 20171127
  Serious: Yes (Death, Hospitalization)
  Sender: FDA-Public Use
  Company Number: US-VIFOR (INTERNATIONAL) INC.-VIT-2017-00783

PATIENT
  Sex: Male

DRUGS (1)
  1. VELTASSA [Suspect]
     Active Substance: PATIROMER
     Indication: RENAL DISORDER
     Dates: start: 201701, end: 2017

REACTIONS (8)
  - Off label use [Unknown]
  - Dehydration [Unknown]
  - Renal failure [Fatal]
  - Diarrhoea [Unknown]
  - Blood potassium increased [Unknown]
  - Dementia [Unknown]
  - Nausea [Unknown]
  - Myocardial infarction [Unknown]

NARRATIVE: CASE EVENT DATE: 2017
